FAERS Safety Report 24838138 (Version 1)
Quarter: 2025Q1

REPORT INFORMATION
  Report Type: Spontaneous
  Country: FR (occurrence: FR)
  Receive Date: 20250113
  Receipt Date: 20250113
  Transmission Date: 20250409
  Serious: Yes (Hospitalization)
  Sender: MYLAN
  Company Number: None

PATIENT
  Age: 46 Year
  Sex: Female
  Weight: 96 kg

DRUGS (3)
  1. VANCOMYCIN [Suspect]
     Active Substance: VANCOMYCIN
     Indication: Superinfection bacterial
     Route: 042
     Dates: start: 20240729
  2. PIPERACILLIN SODIUM\TAZOBACTAM SODIUM [Interacting]
     Active Substance: PIPERACILLIN SODIUM\TAZOBACTAM SODIUM
     Indication: Superinfection bacterial
     Route: 042
     Dates: start: 20240729
  3. KETOPROFEN [Interacting]
     Active Substance: KETOPROFEN
     Indication: Superinfection bacterial
     Route: 042
     Dates: start: 20240728

REACTIONS (2)
  - Acute kidney injury [Not Recovered/Not Resolved]
  - Drug interaction [Unknown]

NARRATIVE: CASE EVENT DATE: 20240729
